FAERS Safety Report 21540147 (Version 1)
Quarter: 2022Q4

REPORT INFORMATION
  Report Type: Spontaneous
  Country: CN (occurrence: None)
  Receive Date: 20221102
  Receipt Date: 20221102
  Transmission Date: 20230112
  Serious: Yes (Other)
  Sender: FDA-Public Use
  Company Number: CN-ROCHE-3209740

PATIENT
  Age: 78 Year
  Sex: Male

DRUGS (14)
  1. RITUXIMAB [Suspect]
     Active Substance: RITUXIMAB
     Indication: Diffuse large B-cell lymphoma
     Dosage: R-CDOP
     Route: 065
     Dates: start: 202203
  2. RITUXIMAB [Suspect]
     Active Substance: RITUXIMAB
     Dosage: R-MINICDOP, DOSE REDUCED BY 1/3
     Route: 065
     Dates: start: 202204
  3. OBINUTUZUMAB [Suspect]
     Active Substance: OBINUTUZUMAB
     Indication: Diffuse large B-cell lymphoma
     Dosage: D0, 21 DAYS AS A CYCLE
     Route: 042
     Dates: start: 202207
  4. CYCLOPHOSPHAMIDE [Concomitant]
     Active Substance: CYCLOPHOSPHAMIDE
     Indication: Diffuse large B-cell lymphoma
     Dosage: R-CDOP
     Dates: start: 202203
  5. CYCLOPHOSPHAMIDE [Concomitant]
     Active Substance: CYCLOPHOSPHAMIDE
     Dosage: R-MINICDOP, DOSE REDUCED BY 1/3
     Dates: start: 202204, end: 202206
  6. DOXORUBICIN HYDROCHLORIDE [Concomitant]
     Active Substance: DOXORUBICIN HYDROCHLORIDE
     Indication: Diffuse large B-cell lymphoma
     Dosage: R-CDOP
     Dates: start: 202203
  7. DOXORUBICIN HYDROCHLORIDE [Concomitant]
     Active Substance: DOXORUBICIN HYDROCHLORIDE
     Dosage: R-MINICDOP, DOSE REDUCED BY 1/3
     Dates: start: 202204, end: 202206
  8. VINCRISTINE [Concomitant]
     Active Substance: VINCRISTINE
     Indication: Diffuse large B-cell lymphoma
     Dosage: R-CDOP
     Dates: start: 202203
  9. VINCRISTINE [Concomitant]
     Active Substance: VINCRISTINE
     Dosage: R-MINICDOP, DOSE REDUCED BY 1/3
     Dates: start: 202204, end: 202206
  10. PREDNISONE [Concomitant]
     Active Substance: PREDNISONE
     Indication: Diffuse large B-cell lymphoma
     Dosage: R-CDOP
     Dates: start: 202203
  11. PREDNISONE [Concomitant]
     Active Substance: PREDNISONE
     Dosage: R-MINICDOP, DOSE REDUCED BY 1/3
     Dates: start: 202204, end: 202206
  12. GEMCITABINE [Concomitant]
     Active Substance: GEMCITABINE
     Indication: Diffuse large B-cell lymphoma
     Dosage: D1, D8, 21 DAYS AS A CYCLE
     Dates: start: 202207
  13. OXALIPLATIN [Concomitant]
     Active Substance: OXALIPLATIN
     Indication: Diffuse large B-cell lymphoma
     Dosage: D1, 21 DAYS AS A CYCLE
     Dates: start: 202207
  14. LENALIDOMIDE [Concomitant]
     Active Substance: LENALIDOMIDE
     Indication: Diffuse large B-cell lymphoma
     Dates: start: 2022

REACTIONS (6)
  - Myelosuppression [Recovered/Resolved]
  - Decreased appetite [Unknown]
  - Nausea [Unknown]
  - Asthenia [Unknown]
  - Gastrointestinal disorder [Unknown]
  - Off label use [Unknown]
